FAERS Safety Report 7372282-8 (Version None)
Quarter: 2011Q1

REPORT INFORMATION
  Report Type: 
  Country: None (occurrence: None)
  Receive Date: 20110324
  Receipt Date: 20110316
  Transmission Date: 20110831
  Serious: Yes (Congenital Anomaly)
  Sender: FDA-Public Use
  Company Number: A0919480A

PATIENT
  Sex: Female
  Weight: 2.8 kg

DRUGS (5)
  1. PAROXETINE HYDROCHLORIDE [Suspect]
     Route: 064
  2. PAROXETINE HYDROCHLORIDE [Suspect]
     Route: 064
  3. SEROQUEL [Concomitant]
  4. PAXIL [Suspect]
     Dosage: 30MG IN THE MORNING
     Route: 064
  5. PRENATAL VITAMINS [Concomitant]

REACTIONS (5)
  - DEVELOPMENTAL DELAY [None]
  - CONGENITAL CENTRAL NERVOUS SYSTEM ANOMALY [None]
  - MICROCEPHALY [None]
  - EPILEPSY [None]
  - DRUG EXPOSURE DURING PREGNANCY [None]
